FAERS Safety Report 6302045-3 (Version None)
Quarter: 2009Q3

REPORT INFORMATION
  Report Type: 
  Country: None (occurrence: None)
  Receive Date: 20090807
  Receipt Date: 20090730
  Transmission Date: 20100115
  Serious: Yes (Hospitalization)
  Sender: FDA-Public Use
  Company Number: FR-ABBOTT-09P-056-0588897-00

PATIENT
  Sex: Female

DRUGS (6)
  1. HUMIRA [Suspect]
     Indication: ANKYLOSING SPONDYLITIS
     Route: 058
     Dates: start: 20080211, end: 20090403
  2. HUMIRA [Suspect]
     Indication: CROHN'S DISEASE
  3. REMICADE [Suspect]
     Indication: ANKYLOSING SPONDYLITIS
     Dosage: ONCE
     Route: 042
     Dates: start: 20060611
  4. REMICADE [Suspect]
     Indication: CROHN'S DISEASE
  5. ENTOCORT EC [Concomitant]
     Indication: CROHN'S DISEASE
     Dates: end: 20080101
  6. IMUREL [Concomitant]
     Indication: DRUG USE FOR UNKNOWN INDICATION
     Dates: end: 20080701

REACTIONS (3)
  - DERMATITIS PSORIASIFORM [None]
  - PSORIASIS [None]
  - PUSTULAR PSORIASIS [None]
